FAERS Safety Report 8360528-9 (Version None)
Quarter: 2012Q2

REPORT INFORMATION
  Report Type: 
  Country: None (occurrence: None)
  Receive Date: 20120515
  Receipt Date: 20120509
  Transmission Date: 20120825
  Serious: Yes (Death, Other)
  Sender: FDA-Public Use
  Company Number: KR-ELI_LILLY_AND_COMPANY-KR201203002565

PATIENT
  Age: 36 Year
  Sex: Female

DRUGS (4)
  1. CISPLATIN [Concomitant]
     Indication: METASTASES TO CENTRAL NERVOUS SYSTEM
  2. FOLIC ACID [Concomitant]
     Dosage: 1 MG, QD
  3. PEMETREXED [Suspect]
     Indication: METASTASES TO CENTRAL NERVOUS SYSTEM
  4. VITAMIN B-12 [Concomitant]

REACTIONS (5)
  - LUNG NEOPLASM MALIGNANT [None]
  - NEOPLASM PROGRESSION [None]
  - FEBRILE NEUTROPENIA [None]
  - RENAL FAILURE ACUTE [None]
  - PNEUMONIA [None]
